FAERS Safety Report 8764468 (Version 1)
Quarter: 2012Q4

REPORT INFORMATION
  Report Type: 
  Country: US (occurrence: US)
  Receive Date: 20120905
  Receipt Date: 20120905
  Transmission Date: 20130627
  Serious: No
  Sender: FDA-Public Use
  Company Number: US-PFIZER INC-2012210810

PATIENT
  Age: 71 Year
  Sex: Female
  Weight: 99.77 kg

DRUGS (15)
  1. CELEBREX [Suspect]
     Indication: PAIN
     Dosage: UNK
     Route: 048
     Dates: start: 2007
  2. CELEBREX [Suspect]
     Indication: OSTEOARTHRITIS
     Dosage: 200 mg, 1x/day for 10 days
  3. CELEBREX [Suspect]
     Indication: OSTEOARTHRITIS
  4. MORPHINE [Suspect]
     Indication: PAIN
     Dosage: 30 mg, 2x/day
     Route: 048
     Dates: start: 201202
  5. MORPHINE [Suspect]
     Indication: OSTEOARTHRITIS
  6. LYRICA [Concomitant]
     Dosage: 25 mg, 3x/day
  7. HYDROCHLOROTHIAZIDE/LOSARTAN [Concomitant]
     Indication: HYPERTENSION
     Dosage: 100/25 mg, 1x/day
  8. NORVASC [Concomitant]
     Indication: HYPERTENSION
     Dosage: 5 mg, 1x/day
  9. SYNTHROID [Concomitant]
     Indication: HYPOTHYROIDISM
     Dosage: 150 ug, 1x/day
  10. NEXIUM [Concomitant]
     Indication: GASTROOESOPHAGEAL REFLUX DISEASE
     Dosage: 40 mg, 2x/day
  11. LIPITOR [Concomitant]
     Indication: BLOOD CHOLESTEROL INCREASED
     Dosage: 10 mg, 1x/day
  12. SINGULAIR [Concomitant]
     Indication: ASTHMA
     Dosage: 10 mg, 1x/day
  13. FORMONIDE [Concomitant]
     Indication: ASTHMA
     Dosage: 2 puffs , 2x/day
  14. OXYCODONE [Concomitant]
     Dosage: 15 mg, as needed
  15. AMBIEN [Concomitant]
     Dosage: 10 mg, 1x/day

REACTIONS (5)
  - Drug ineffective [Unknown]
  - Osteoarthritis [Not Recovered/Not Resolved]
  - Drug tolerance [Unknown]
  - Malaise [Unknown]
  - Feeling abnormal [Unknown]
